FAERS Safety Report 13031429 (Version 1)
Quarter: 2016Q4

REPORT INFORMATION
  Report Type: Spontaneous
  Country: US (occurrence: US)
  Receive Date: 20161215
  Receipt Date: 20161215
  Transmission Date: 20170207
  Serious: No
  Sender: FDA-Public Use
  Company Number: US-GLAXOSMITHKLINE-US2016185311

PATIENT
  Age: 59 Year
  Sex: Male

DRUGS (3)
  1. FLOVENT DISKUS [Suspect]
     Active Substance: FLUTICASONE PROPIONATE
     Dosage: 2 PUFF(S), QD
     Route: 055
  2. PROAIR HFA [Concomitant]
     Active Substance: ALBUTEROL SULFATE
  3. FLOVENT DISKUS [Suspect]
     Active Substance: FLUTICASONE PROPIONATE
     Indication: ASTHMA
     Dosage: 2 PUFF(S), BID
     Route: 055

REACTIONS (12)
  - Cough [Recovering/Resolving]
  - Prescribed underdose [Unknown]
  - Bronchitis [Recovering/Resolving]
  - Dysphonia [Recovering/Resolving]
  - Upper-airway cough syndrome [Recovering/Resolving]
  - Drug ineffective [Unknown]
  - Chest X-ray [Unknown]
  - Drug administration error [Unknown]
  - Expired product administered [Unknown]
  - Dyspnoea [Recovering/Resolving]
  - Chest discomfort [Recovering/Resolving]
  - Off label use [Unknown]

NARRATIVE: CASE EVENT DATE: 20161202
